FAERS Safety Report 5315855-6 (Version None)
Quarter: 2007Q2

REPORT INFORMATION
  Report Type: 
  Country: None (occurrence: None)
  Receive Date: 20070503
  Receipt Date: 20070425
  Transmission Date: 20071010
  Serious: Yes (Hospitalization)
  Sender: FDA-Public Use
  Company Number: DE-JNJFOC-20070403383

PATIENT
  Age: 78 Year
  Sex: Male

DRUGS (11)
  1. TAVANIC [Suspect]
     Indication: ASTHMA
     Route: 048
  2. SALBUTAMOL [Concomitant]
     Indication: ASTHMA
     Route: 055
  3. BRONCHORET [Concomitant]
     Indication: ASTHMA
     Route: 048
  4. SIMVASTATIN [Concomitant]
     Indication: HYPERCHOLESTEROLAEMIA
     Route: 048
  5. ASPIRIN [Concomitant]
     Indication: CORONARY ARTERY DISEASE
     Route: 048
  6. RAMIPRIL [Concomitant]
     Indication: HYPERTENSION
     Route: 048
  7. PREDNISOLONE [Concomitant]
     Route: 065
  8. CALCIUM VITAMIN D3 [Concomitant]
     Indication: OSTEOPOROSIS
     Route: 065
  9. NEXIUM [Concomitant]
     Route: 065
  10. SYMBICORT [Concomitant]
     Route: 055
  11. SPIRIVA [Concomitant]
     Route: 065

REACTIONS (2)
  - HYPERTENSION [None]
  - TACHYCARDIA [None]
